FAERS Safety Report 7880147-8 (Version None)
Quarter: 2011Q4

REPORT INFORMATION
  Report Type: 
  Country: None (occurrence: None)
  Receive Date: 20111101
  Receipt Date: 20111025
  Transmission Date: 20120403
  Serious: Yes (Death, Other)
  Sender: FDA-Public Use
  Company Number: US-BAYER-200940578NA

PATIENT
  Age: 59 Year
  Sex: Female
  Weight: 96.599 kg

DRUGS (16)
  1. TRASYLOL [Suspect]
     Indication: AORTIC ANEURYSM REPAIR
     Dosage: 80
     Route: 042
     Dates: start: 20041029, end: 20041029
  2. MILRINONE [Concomitant]
     Dosage: UNK
     Route: 042
     Dates: start: 20041029
  3. DIGOXIN [Concomitant]
  4. CARDIZEM [Concomitant]
     Dosage: 120 MG, UNK
  5. ETOMIDATE [Concomitant]
     Dosage: 20
     Route: 042
     Dates: start: 20041029
  6. LOPRESSOR [Concomitant]
     Dosage: 50 MG, UNK
  7. AMBIEN [Concomitant]
  8. FENTANYL-100 [Concomitant]
     Dosage: 15 MG, UNK
     Route: 042
     Dates: start: 20041029
  9. EPINEPHRINE [Concomitant]
     Dosage: UNK
     Route: 042
     Dates: start: 20041029
  10. TRASYLOL [Suspect]
     Indication: CARDIAC OPERATION
     Dosage: 200 ML, PRIME
     Route: 042
     Dates: start: 20041029, end: 20041029
  11. TRASYLOL [Suspect]
     Dosage: 50 CC/HOUR INFUSION
     Route: 042
     Dates: start: 20041029, end: 20041029
  12. SOLU-MEDROL [Concomitant]
     Dosage: UNK
     Route: 042
     Dates: start: 20041029
  13. DOPAMINE HCL [Concomitant]
     Dosage: UNK
     Route: 042
     Dates: start: 20041029
  14. HEPARIN [Concomitant]
     Dosage: UNK
     Route: 042
     Dates: start: 20041029
  15. VERSED [Concomitant]
     Dosage: 10 MG, UNK
     Route: 042
     Dates: start: 20041029
  16. PROTAMINE SULFATE [Concomitant]
     Dosage: UNK
     Route: 042
     Dates: start: 20041029

REACTIONS (13)
  - ANXIETY [None]
  - STRESS [None]
  - MULTI-ORGAN FAILURE [None]
  - RENAL INJURY [None]
  - EMOTIONAL DISTRESS [None]
  - UNEVALUABLE EVENT [None]
  - FEAR [None]
  - ANHEDONIA [None]
  - PAIN [None]
  - RENAL FAILURE [None]
  - INJURY [None]
  - DEATH [None]
  - RENAL IMPAIRMENT [None]
